FAERS Safety Report 9270335 (Version 2)
Quarter: 2013Q2

REPORT INFORMATION
  Report Type: Spontaneous
  Country: DE (occurrence: DE)
  Receive Date: 20130503
  Receipt Date: 20130531
  Transmission Date: 20140414
  Serious: Yes (Hospitalization)
  Sender: FDA-Public Use
  Company Number: DE-JNJFOC-20130416396

PATIENT
  Age: 62 Year
  Sex: Female
  Weight: 73 kg

DRUGS (5)
  1. REMICADE [Suspect]
     Indication: RHEUMATOID ARTHRITIS
     Route: 042
     Dates: start: 200207
  2. METHOTREXATE [Concomitant]
     Route: 065
     Dates: start: 199511, end: 199603
  3. METHOTREXATE [Concomitant]
     Route: 065
     Dates: start: 200207, end: 200401
  4. QUENSYL [Concomitant]
     Indication: CUTANEOUS LUPUS ERYTHEMATOSUS
     Route: 065
     Dates: end: 201207
  5. PANTOPRAZOLE [Concomitant]
     Indication: GASTRITIS
     Route: 065

REACTIONS (1)
  - Diffuse large B-cell lymphoma [Recovering/Resolving]
